FAERS Safety Report 4445210-2 (Version None)
Quarter: 2004Q3

REPORT INFORMATION
  Report Type: 
  Country: None (occurrence: None)
  Receive Date: 20040903
  Receipt Date: 20040827
  Transmission Date: 20050211
  Serious: Yes (Death)
  Sender: FDA-Public Use
  Company Number: 163-20785-04070611

PATIENT
  Age: 73 Year
  Sex: Female

DRUGS (1)
  1. THALOMID [Suspect]
     Indication: AMYLOIDOSIS
     Dosage: 100 MG, DAILY, ORAL
     Route: 048
     Dates: start: 20031219, end: 20040705

REACTIONS (5)
  - BLOOD POTASSIUM INCREASED [None]
  - BRADYCARDIA [None]
  - HYPOTENSION [None]
  - PROCEDURAL COMPLICATION [None]
  - VENTRICULAR ARRHYTHMIA [None]
